FAERS Safety Report 8335841-1 (Version None)
Quarter: 2012Q2

REPORT INFORMATION
  Report Type: 
  Country: None (occurrence: None)
  Receive Date: 20120502
  Receipt Date: 20120502
  Transmission Date: 20120825
  Serious: No
  Sender: FDA-Public Use
  Company Number: None

PATIENT
  Sex: Female
  Weight: 77.1115 kg

DRUGS (2)
  1. VICODIN [Suspect]
     Indication: INTERVERTEBRAL DISC DEGENERATION
     Dosage: 5/500 MG 1 TAB 4 X DAILY ORAL
     Route: 048
     Dates: start: 20120315
  2. VICODIN [Suspect]
     Indication: SPINAL COLUMN STENOSIS
     Dosage: 5/500 MG 1 TAB 4 X DAILY ORAL
     Route: 048
     Dates: start: 20120315

REACTIONS (3)
  - PAIN [None]
  - CONDITION AGGRAVATED [None]
  - DRUG INEFFECTIVE [None]
